FAERS Safety Report 18956662 (Version 1)
Quarter: 2021Q1

REPORT INFORMATION
  Report Type: Other
  Country: FR (occurrence: FR)
  Receive Date: 20210301
  Receipt Date: 20210301
  Transmission Date: 20210420
  Serious: Yes (Hospitalization)
  Sender: FDA-Public Use
  Company Number: FR-CELLTRION INC.-2021FR002320

PATIENT

DRUGS (3)
  1. TRASTUZUMAB (UNKNOWN) [Suspect]
     Active Substance: TRASTUZUMAB
     Indication: BREAST CANCER
     Dosage: 648.9 MG, CYCLIC
     Route: 042
     Dates: start: 20200526, end: 20200619
  2. PERJETA [Suspect]
     Active Substance: PERTUZUMAB
     Indication: BREAST CANCER
     Dosage: 840 MG, CYCLIC
     Route: 042
     Dates: start: 20200526, end: 20200619
  3. PACLITAXEL. [Suspect]
     Active Substance: PACLITAXEL
     Indication: BREAST CANCER
     Dosage: 144 MG, CYCLIC
     Route: 042
     Dates: start: 20200526, end: 20200629

REACTIONS (1)
  - Stress cardiomyopathy [Recovered/Resolved]

NARRATIVE: CASE EVENT DATE: 20200720
